FAERS Safety Report 21407421 (Version 1)
Quarter: 2022Q4

REPORT INFORMATION
  Report Type: Spontaneous
  Country: US (occurrence: None)
  Receive Date: 20221004
  Receipt Date: 20221004
  Transmission Date: 20230112
  Serious: Yes (Death)
  Sender: FDA-Public Use
  Company Number: None

PATIENT
  Age: 27 Year
  Sex: Male

DRUGS (1)
  1. HERBALS\MITRAGYNINE [Suspect]
     Active Substance: HERBALS\MITRAGYNINE
     Route: 048

REACTIONS (10)
  - Vertigo [None]
  - Tympanic membrane perforation [None]
  - Ear infection [None]
  - Seizure [None]
  - Toxicity to various agents [None]
  - Substance abuse [None]
  - Pulmonary oedema [None]
  - Coronary artery stenosis [None]
  - Toxicity to various agents [None]
  - Aortic valve disease [None]
